FAERS Safety Report 16725064 (Version 3)
Quarter: 2019Q3

REPORT INFORMATION
  Report Type: Spontaneous
  Country: US (occurrence: US)
  Receive Date: 20190821
  Receipt Date: 20190920
  Transmission Date: 20191005
  Serious: Yes (Hospitalization)
  Sender: FDA-Public Use
  Company Number: US-PFIZER INC-2019356581

PATIENT
  Age: 29 Year
  Sex: Female
  Weight: 77.55 kg

DRUGS (2)
  1. RELPAX [Suspect]
     Active Substance: ELETRIPTAN HYDROBROMIDE
     Indication: MIGRAINE
     Dosage: 40 MG, 2X/DAY
     Dates: start: 20190814, end: 20190815
  2. RELPAX [Suspect]
     Active Substance: ELETRIPTAN HYDROBROMIDE
     Dosage: 40 MG, 1X/DAY
     Dates: start: 20190816, end: 20190816

REACTIONS (11)
  - Abdominal pain upper [Recovered/Resolved]
  - Dehydration [Unknown]
  - Drug ineffective [Unknown]
  - Nausea [Recovered/Resolved]
  - Malaise [Recovered/Resolved]
  - Pain [Recovered/Resolved]
  - Recalled product administered [Recovered/Resolved]
  - Diarrhoea [Recovered/Resolved]
  - Irritable bowel syndrome [Recovered/Resolved]
  - Headache [Unknown]
  - Viral infection [Unknown]

NARRATIVE: CASE EVENT DATE: 2019
